FAERS Safety Report 6406431-2 (Version None)
Quarter: 2009Q4

REPORT INFORMATION
  Report Type: 
  Country: None (occurrence: None)
  Receive Date: 20091014
  Receipt Date: 20091008
  Transmission Date: 20100525
  Serious: Yes (Other)
  Sender: FDA-Public Use
  Company Number: 2009SP029565

PATIENT
  Age: 9 Year
  Sex: Male

DRUGS (1)
  1. MIRALAX [Suspect]
     Indication: DRUG USE FOR UNKNOWN INDICATION
     Dosage: ;PO
     Route: 048

REACTIONS (2)
  - DRUG DEPENDENCE [None]
  - UNEVALUABLE EVENT [None]
